FAERS Safety Report 9351736 (Version 2)
Quarter: 2013Q3

REPORT INFORMATION
  Report Type: Spontaneous
  Country: US (occurrence: US)
  Receive Date: 20130617
  Receipt Date: 20130807
  Transmission Date: 20140515
  Serious: Yes (Hospitalization)
  Sender: FDA-Public Use
  Company Number: US-BIOGENIDEC-2013BI051695

PATIENT
  Age: 40 Year
  Sex: Female

DRUGS (3)
  1. TYSABRI [Suspect]
     Indication: MULTIPLE SCLEROSIS
     Route: 042
     Dates: start: 20130318, end: 20130508
  2. CHANTIX [Concomitant]
  3. LIPITOR [Concomitant]

REACTIONS (2)
  - Infusion related reaction [Recovered/Resolved]
  - Drug specific antibody present [Unknown]
